FAERS Safety Report 21652499 (Version 5)
Quarter: 2023Q1

REPORT INFORMATION
  Report Type: Spontaneous
  Country: PL (occurrence: PL)
  Receive Date: 20221128
  Receipt Date: 20230222
  Transmission Date: 20230417
  Serious: Yes (Hospitalization, Other)
  Sender: FDA-Public Use
  Company Number: PL-MYLANLABS-2022M1130792

PATIENT
  Age: 91 Year
  Sex: Female

DRUGS (21)
  1. EPLERENONE [Suspect]
     Active Substance: EPLERENONE
     Indication: Myocardial infarction
     Dosage: 50 MILLIGRAM
     Route: 065
  2. EPLERENONE [Interacting]
     Active Substance: EPLERENONE
     Indication: Myocardial infarction
     Dosage: 25 MILLIGRAM
     Route: 065
     Dates: start: 202112
  3. ATORVASTATIN [Suspect]
     Active Substance: ATORVASTATIN
     Indication: Myocardial infarction
     Dosage: 20 MILLIGRAM, QD (20 MG, PER DAY)
     Route: 065
  4. CARVEDILOL [Suspect]
     Active Substance: CARVEDILOL
     Indication: Myocardial infarction
     Dosage: 25 MILLIGRAM, STRENGTH: 25 MG
     Route: 065
  5. VALSARTAN [Interacting]
     Active Substance: VALSARTAN
     Indication: Cardiac failure
     Dosage: 26 MILLIGRAM
     Route: 065
     Dates: start: 202112
  6. FERROUS SULFATE [Suspect]
     Active Substance: FERROUS SULFATE
     Indication: Product used for unknown indication
     Dosage: UNK
     Route: 065
  7. INDAPAMIDE [Suspect]
     Active Substance: INDAPAMIDE
     Indication: Myocardial infarction
     Dosage: 1.5 MILLIGRAM, STRENGTH: 1.5 MG
     Route: 065
  8. PERINDOPRIL [Suspect]
     Active Substance: PERINDOPRIL
     Indication: Myocardial infarction
     Dosage: 10 MILLIGRAM, STRENGTH: 10 MG
     Route: 065
  9. SACUBITRIL [Interacting]
     Active Substance: SACUBITRIL
     Indication: Cardiac failure
     Dosage: 24 MILLIGRAM, QD (24 MG, PER DAY)
     Route: 065
     Dates: start: 202112
  10. TORSEMIDE [Suspect]
     Active Substance: TORSEMIDE
     Indication: Cardiac failure
     Dosage: 10 MILLIGRAM
     Route: 065
  11. TORSEMIDE [Suspect]
     Active Substance: TORSEMIDE
     Indication: Myocardial infarction
  12. DAPAGLIFLOZIN [Interacting]
     Active Substance: DAPAGLIFLOZIN
     Indication: Cardiac failure
     Dosage: 10 MILLIGRAM
     Route: 065
     Dates: start: 202112
  13. BISOPROLOL [Interacting]
     Active Substance: BISOPROLOL
     Indication: Cardiac failure
     Dosage: 2.5 MILLIGRAM
     Route: 065
     Dates: start: 202112
  14. ATORVASTATIN [Interacting]
     Active Substance: ATORVASTATIN
     Indication: Cardiac failure
     Dosage: 20 MILLIGRAM
     Route: 065
     Dates: start: 202112
  15. ASPIRIN [Interacting]
     Active Substance: ASPIRIN
     Indication: Cardiac failure
     Dosage: 75 MILLIGRAM
     Route: 065
     Dates: start: 202112
  16. ASPIRIN [Interacting]
     Active Substance: ASPIRIN
     Indication: Myocardial infarction
  17. RAMIPRIL [Concomitant]
     Active Substance: RAMIPRIL
     Indication: Cardiac failure
     Dosage: 2.5 MILLIGRAM, QD (2.5 MG, PER DAY)
     Route: 065
  18. EPLERENONE [Concomitant]
     Active Substance: EPLERENONE
     Indication: Cardiac failure
     Dosage: UNK
     Route: 065
  19. SODIUM CHLORIDE [Concomitant]
     Active Substance: SODIUM CHLORIDE
     Indication: Cardiac failure
     Dosage: 500 MILLILITER
     Route: 065
  20. SODIUM CHLORIDE [Concomitant]
     Active Substance: SODIUM CHLORIDE
     Dosage: 0.9% 500ML
     Route: 065
  21. FUROSEMIDE [Concomitant]
     Active Substance: FUROSEMIDE
     Indication: Cardiac failure
     Dosage: 20 MG, QD (ONCE A DAY)
     Route: 042

REACTIONS (18)
  - Condition aggravated [Unknown]
  - Cardiac failure [Recovering/Resolving]
  - Blood uric acid increased [Recovered/Resolved]
  - Pulmonary oedema [Recovered/Resolved]
  - Glomerular filtration rate increased [Recovering/Resolving]
  - Cardiac failure chronic [Unknown]
  - Renal impairment [Recovering/Resolving]
  - Hyperkalaemia [Recovering/Resolving]
  - Blood creatinine increased [Recovering/Resolving]
  - Blood urea increased [Recovering/Resolving]
  - Oedema peripheral [Recovered/Resolved]
  - Asthenia [Recovered/Resolved]
  - Dyspnoea [Recovered/Resolved]
  - Oedema [Recovered/Resolved]
  - Drug interaction [Unknown]
  - Creatinine urine increased [Recovered/Resolved]
  - Glomerular filtration rate decreased [Recovered/Resolved]
  - Drug ineffective [Recovering/Resolving]

NARRATIVE: CASE EVENT DATE: 20211201
